FAERS Safety Report 4978828-9 (Version None)
Quarter: 2006Q2

REPORT INFORMATION
  Report Type: 
  Country: None (occurrence: None)
  Receive Date: 20060417
  Receipt Date: 20060407
  Transmission Date: 20061013
  Serious: Yes (Hospitalization)
  Sender: FDA-Public Use
  Company Number: 2006-04-0393

PATIENT
  Age: 26 Year
  Sex: Female

DRUGS (7)
  1. PEGASYS [Suspect]
     Indication: HEPATITIS C
     Dosage: 180 MCG QW SUBCUTANEOUS
     Route: 058
     Dates: start: 20020401
  2. REBETOL [Suspect]
     Indication: HEPATITIS C
     Dosage: 400 MG BID ORAL
     Route: 048
     Dates: start: 20020401
  3. GRANOCYTE        (LENOGRASTIM) INJECTABLE [Concomitant]
  4. NEORECORMON       (EPOETINE BETA) INJECTABLE [Concomitant]
  5. AMITRIPTYLINE HYDROCHLORIDE [Concomitant]
  6. DIAZEPAM ORAL SOLUTION [Concomitant]
  7. PARACETAMOL [Concomitant]

REACTIONS (8)
  - AGITATION [None]
  - ASTHENIA [None]
  - EXCITABILITY [None]
  - MENTAL DISORDER [None]
  - PANIC DISORDER [None]
  - PSYCHIATRIC SYMPTOM [None]
  - RESTLESSNESS [None]
  - SOMATISATION DISORDER [None]
